FAERS Safety Report 7473142-4 (Version None)
Quarter: 2011Q2

REPORT INFORMATION
  Report Type: 
  Country: None (occurrence: None)
  Receive Date: 20110511
  Receipt Date: 20110505
  Transmission Date: 20111010
  Serious: Yes (Life-Threatening, Hospitalization, Other)
  Sender: FDA-Public Use
  Company Number: GXKR2011DE01166

PATIENT
  Age: 67 Year
  Sex: Female
  Weight: 93 kg

DRUGS (8)
  1. RAMIPRIL [Suspect]
     Dosage: 2.5 MG, BID
     Route: 048
     Dates: start: 20100923, end: 20101102
  2. IBUPROFEN [Suspect]
     Indication: SPINAL OSTEOARTHRITIS
     Dosage: 400 MG, QD
     Route: 048
     Dates: start: 20101103, end: 20101103
  3. RAMIPRIL [Suspect]
     Dosage: 2.5 MG, QD
     Route: 048
     Dates: start: 20101118, end: 20101129
  4. AMLODIPINE [Suspect]
     Indication: HYPERTENSION
     Dosage: 5-10 MG/DAY; BREAK: 04 NOV 2010
     Route: 048
     Dates: start: 20100923, end: 20101109
  5. DICLOFENAC SODIUM (SOLARAZE) [Suspect]
     Indication: SPINAL OSTEOARTHRITIS
     Dosage: UNK UKN, PRN
     Route: 048
     Dates: end: 20101102
  6. AMIODARONE HYDROCHLORIDE [Suspect]
     Indication: ATRIAL FIBRILLATION
     Dosage: 200 MG, UNK
     Route: 048
     Dates: start: 20101103, end: 20101109
  7. RAMIPRIL [Suspect]
     Dosage: 2.5 MG, BID
     Route: 048
     Dates: start: 20101105, end: 20101109
  8. IBUPROFEN [Suspect]
     Indication: SPINAL OSTEOARTHRITIS
     Dosage: UNK UKN, PRN
     Route: 048
     Dates: end: 20101102

REACTIONS (2)
  - RENAL FAILURE ACUTE [None]
  - TUBULOINTERSTITIAL NEPHRITIS [None]
